FAERS Safety Report 18171326 (Version 1)
Quarter: 2020Q3

REPORT INFORMATION
  Report Type: Report from Study
  Country: US (occurrence: US)
  Receive Date: 20200819
  Receipt Date: 20200819
  Transmission Date: 20201103
  Serious: Yes (Other)
  Sender: FDA-Public Use
  Company Number: US-ASTRAZENECA-2020SF03331

PATIENT
  Sex: Female
  Weight: 93.4 kg

DRUGS (7)
  1. CRESTOR [Suspect]
     Active Substance: ROSUVASTATIN CALCIUM
     Indication: BLOOD CHOLESTEROL ABNORMAL
     Route: 048
     Dates: end: 2019
  2. LIPTIOR [Concomitant]
  3. XANAX [Concomitant]
     Active Substance: ALPRAZOLAM
     Indication: PANIC ATTACK
     Dosage: UP TO 3 PILLS A DAY BUT SINCE SHE DOES NOT DRIVE ANYMORE SHE DOES NOT TAKE IT FOR THAT REASON 0.2...
     Route: 048
  4. ZOLOFT [Concomitant]
     Active Substance: SERTRALINE HYDROCHLORIDE
     Indication: DEPRESSION
     Route: 048
  5. XANAX [Concomitant]
     Active Substance: ALPRAZOLAM
     Indication: SLEEP DISORDER
     Dosage: UP TO 3 PILLS A DAY BUT SINCE SHE DOES NOT DRIVE ANYMORE SHE DOES NOT TAKE IT FOR THAT REASON 0.2...
     Route: 048
  6. HYDROCLORIZIDE [Concomitant]
     Indication: BLOOD PRESSURE ABNORMAL
  7. MULTIVITAMIN [Concomitant]
     Active Substance: VITAMINS
     Dosage: B?12, D?3, AND A WOMAN VITAMIN

REACTIONS (10)
  - Odynophagia [Recovered/Resolved]
  - Insurance issue [Unknown]
  - Headache [Unknown]
  - Ill-defined disorder [Unknown]
  - Blood cholesterol abnormal [Unknown]
  - Body height decreased [Unknown]
  - Neck pain [Unknown]
  - Gait disturbance [Unknown]
  - Arthralgia [Unknown]
  - Pain [Recovered/Resolved]
